FAERS Safety Report 4755826-1 (Version None)
Quarter: 2005Q3

REPORT INFORMATION
  Report Type: 
  Country: None (occurrence: None)
  Receive Date: 20050830
  Receipt Date: 20050406
  Transmission Date: 20060218
  Serious: No
  Sender: FDA-Public Use
  Company Number: US-BRISTOL-MYERS SQUIBB COMPANY-12926226

PATIENT

DRUGS (1)
  1. ERBITUX [Suspect]

REACTIONS (1)
  - PLATELET COUNT INCREASED [None]
